FAERS Safety Report 8173344-8 (Version None)
Quarter: 2012Q1

REPORT INFORMATION
  Report Type: 
  Country: None (occurrence: None)
  Receive Date: 20120229
  Receipt Date: 20120216
  Transmission Date: 20120608
  Serious: Yes (Hospitalization, Other)
  Sender: FDA-Public Use
  Company Number: FR-MEDIMMUNE-MEDI-0015021

PATIENT
  Sex: Male

DRUGS (1)
  1. SYNAGIS [Suspect]
     Dates: start: 20111024, end: 20111216

REACTIONS (4)
  - RESPIRATORY SYNCYTIAL VIRUS INFECTION [None]
  - HYPOTHERMIA [None]
  - DRUG INEFFECTIVE [None]
  - RESPIRATORY DISTRESS [None]
